FAERS Safety Report 18652137 (Version 2)
Quarter: 2020Q4

REPORT INFORMATION
  Report Type: Report from Study
  Country: PL (occurrence: PL)
  Receive Date: 20201223
  Receipt Date: 20201230
  Transmission Date: 20210114
  Serious: Yes (Death)
  Sender: FDA-Public Use
  Company Number: PL-REGENERON PHARMACEUTICALS, INC.-2020-96170

PATIENT

DRUGS (1)
  1. EYLEA [Suspect]
     Active Substance: AFLIBERCEPT
     Indication: NEOVASCULAR AGE-RELATED MACULAR DEGENERATION
     Dosage: 2 MG OF AFLIBERCEPT, EQUIVALENT OF 50 ML OF SOLUTION
     Route: 031
     Dates: start: 20200608

REACTIONS (1)
  - Death [Fatal]

NARRATIVE: CASE EVENT DATE: 20201128
